FAERS Safety Report 7550803-X (Version None)
Quarter: 2011Q2

REPORT INFORMATION
  Report Type: 
  Country: None (occurrence: None)
  Receive Date: 20110616
  Receipt Date: 20110606
  Transmission Date: 20111010
  Serious: Yes (Other)
  Sender: FDA-Public Use
  Company Number: FR-MPIJNJ-2011-02453

PATIENT

DRUGS (2)
  1. DEXAMETHASONE [Suspect]
     Dosage: 20 MG, UNK
     Route: 048
     Dates: start: 20101102, end: 20110115
  2. VELCADE [Suspect]
     Dosage: 2.6 MG, UNK
     Route: 042
     Dates: start: 20100921, end: 20110114

REACTIONS (1)
  - RESTLESS LEGS SYNDROME [None]
